FAERS Safety Report 4441814-1 (Version None)
Quarter: 2004Q3

REPORT INFORMATION
  Report Type: 
  Country: None (occurrence: None)
  Receive Date: 20040901
  Receipt Date: 20040812
  Transmission Date: 20050211
  Serious: Yes (Hospitalization)
  Sender: FDA-Public Use
  Company Number: 2004056323

PATIENT
  Age: 53 Year
  Sex: Female

DRUGS (6)
  1. NEURONTIN [Suspect]
     Indication: ILL-DEFINED DISORDER
     Dosage: UNK (3 IN1 D), ORAL
     Route: 048
     Dates: start: 20040324, end: 20040101
  2. MEPROBAMATE [Suspect]
     Indication: ILL-DEFINED DISORDER
     Dosage: UNK (1 IN 1 D), ORAL
     Route: 048
     Dates: start: 20040324, end: 20040101
  3. ALUMINIUM PHOSPHATE GEL (ALUMINIUM PHOSPHATE GEL) [Suspect]
     Indication: ILL-DEFINED DISORDER
     Dosage: UNK (3 IN 1 D), ORAL
     Route: 048
     Dates: start: 20040324, end: 20040101
  4. MIANSERIN HYDROCHLORIDE (MIANSERIN HYDROCHLORIDE) [Suspect]
     Indication: ILL-DEFINED DISORDER
     Dosage: UNK (1 IN 1 D), ORAL
     Route: 048
     Dates: start: 20040324, end: 20040101
  5. OMEPRAZOLE [Suspect]
     Indication: ILL-DEFINED DISORDER
     Dosage: UNK (1 IN 1 D), ORAL
     Route: 048
     Dates: start: 20040324, end: 20040101
  6. ZOLPIDEM TARTRATE [Suspect]
     Indication: ILL-DEFINED DISORDER
     Dosage: UNK (1 IN 1 D), ORAL
     Route: 048
     Dates: start: 20040324, end: 20040101

REACTIONS (3)
  - AGRANULOCYTOSIS [None]
  - IATROGENIC INJURY [None]
  - WHITE BLOOD CELL COUNT DECREASED [None]
